FAERS Safety Report 11008640 (Version 1)
Quarter: 2015Q2

REPORT INFORMATION
  Report Type: Spontaneous
  Country: DE (occurrence: None)
  Receive Date: 20150408
  Receipt Date: 20150408
  Transmission Date: 20150821
  Serious: Yes (Other)
  Sender: FDA-Public Use
  Company Number: FK201501602

PATIENT
  Age: 91 Year
  Sex: Male

DRUGS (1)
  1. ZOLEDRONIC ACID (MANUFACTURER UNKNOWN) (ZOLEDRONIC ACID) (ZOLEDRONIC ACID) [Suspect]
     Active Substance: ZOLEDRONIC ACID
     Indication: PROSTATE CANCER
     Dosage: 4 WK, ?(NOT OTHERWISE SPECIFIED)
     Route: 042

REACTIONS (3)
  - Osteonecrosis of jaw [None]
  - Jaw fracture [None]
  - Pathological fracture [None]
